FAERS Safety Report 11540414 (Version 1)
Quarter: 2015Q3

REPORT INFORMATION
  Report Type: Spontaneous
  Country: US (occurrence: US)
  Receive Date: 20150923
  Receipt Date: 20150923
  Transmission Date: 20151125
  Serious: No
  Sender: FDA-Public Use
  Company Number: US-BEH-2014045704

PATIENT
  Sex: Female
  Weight: 75 kg

DRUGS (51)
  1. MARINOL [Concomitant]
     Active Substance: DRONABINOL
  2. ACETAMINOPHEN. [Concomitant]
     Active Substance: ACETAMINOPHEN
  3. CEFTIN [Concomitant]
     Active Substance: CEFUROXIME AXETIL
  4. AMITRIPTYLINE [Concomitant]
     Active Substance: AMITRIPTYLINE
  5. NEURONTIN [Concomitant]
     Active Substance: GABAPENTIN
  6. XYLOCAINE [Concomitant]
     Active Substance: LIDOCAINE HYDROCHLORIDE
  7. NORMAL SALINE [Concomitant]
     Active Substance: SODIUM CHLORIDE
  8. PROCHLORPERAZINE. [Concomitant]
     Active Substance: PROCHLORPERAZINE
  9. ALBUTEROL. [Concomitant]
     Active Substance: ALBUTEROL
  10. SONATA [Concomitant]
     Active Substance: ZALEPLON
  11. MELATONIN [Concomitant]
     Active Substance: MELATONIN
  12. PRIVIGEN [Suspect]
     Active Substance: HUMAN IMMUNOGLOBULIN G
     Indication: MULTIPLE SCLEROSIS
     Route: 042
  13. MAALOX ANTACID [Concomitant]
     Active Substance: ALUMINUM HYDROXIDE\DIMETHICONE\MAGNESIUM HYDROXIDE
  14. NEXIUM [Concomitant]
     Active Substance: ESOMEPRAZOLE MAGNESIUM
  15. DIPHENHYDRAMINE. [Concomitant]
     Active Substance: DIPHENHYDRAMINE
  16. BUTORPHANOL [Concomitant]
     Active Substance: BUTORPHANOL
  17. CITALOPRAM [Concomitant]
     Active Substance: CITALOPRAM HYDROBROMIDE
  18. DHEA ACETATE [Concomitant]
     Active Substance: PRASTERONE ACETATE
  19. COPAXONE [Concomitant]
     Active Substance: GLATIRAMER ACETATE
  20. LYRICA [Concomitant]
     Active Substance: PREGABALIN
  21. TOPAMAX [Concomitant]
     Active Substance: TOPIRAMATE
  22. PRIVIGEN [Suspect]
     Active Substance: HUMAN IMMUNOGLOBULIN G
     Indication: IMMUNODEFICIENCY COMMON VARIABLE
     Route: 042
  23. MORPHINE [Concomitant]
     Active Substance: MORPHINE
  24. ZEGERID [Concomitant]
     Active Substance: OMEPRAZOLE\SODIUM BICARBONATE
  25. SODIUM CHLORIDE. [Concomitant]
     Active Substance: SODIUM CHLORIDE
  26. FROVA [Concomitant]
     Active Substance: FROVATRIPTAN SUCCINATE
  27. VALIUM [Concomitant]
     Active Substance: DIAZEPAM
  28. RELPAX [Concomitant]
     Active Substance: ELETRIPTAN HYDROBROMIDE
  29. MECLIZINE [Concomitant]
     Active Substance: MECLIZINE\MECLIZINE HYDROCHLORIDE
  30. TRAMADOL. [Concomitant]
     Active Substance: TRAMADOL
  31. RANITIDINE [Concomitant]
     Active Substance: RANITIDINE\RANITIDINE HYDROCHLORIDE
  32. HEPARIN [Concomitant]
     Active Substance: HEPARIN SODIUM
  33. TEGRETOL [Concomitant]
     Active Substance: CARBAMAZEPINE
  34. NYSTATIN. [Concomitant]
     Active Substance: NYSTATIN
  35. ATIVAN [Concomitant]
     Active Substance: LORAZEPAM
  36. DRONABINOL. [Concomitant]
     Active Substance: DRONABINOL
  37. TIZANIDINE. [Concomitant]
     Active Substance: TIZANIDINE
  38. FLU VACCINE [Concomitant]
     Active Substance: INFLUENZA VIRUS VACCINE
  39. EFFEXOR [Concomitant]
     Active Substance: VENLAFAXINE HYDROCHLORIDE
  40. CHLORPROMAZINE. [Concomitant]
     Active Substance: CHLORPROMAZINE
  41. MIRALAX [Concomitant]
     Active Substance: POLYETHYLENE GLYCOL 3350
  42. EPIPEN [Concomitant]
     Active Substance: EPINEPHRINE
  43. SINGULAIR [Concomitant]
     Active Substance: MONTELUKAST SODIUM
  44. PROMETHAZINE [Concomitant]
     Active Substance: PROMETHAZINE\PROMETHAZINE HYDROCHLORIDE
  45. ZOFRAN [Concomitant]
     Active Substance: ONDANSETRON HYDROCHLORIDE
  46. NAMENDA [Concomitant]
     Active Substance: MEMANTINE HYDROCHLORIDE
  47. MUCINEX ER [Concomitant]
  48. CRANBERRY. [Concomitant]
     Active Substance: CRANBERRY
  49. ZITHROMAX [Concomitant]
     Active Substance: AZITHROMYCIN DIHYDRATE
  50. IBUPROFEN. [Concomitant]
     Active Substance: IBUPROFEN
  51. CYANOCOBALAMIN. [Concomitant]
     Active Substance: CYANOCOBALAMIN

REACTIONS (2)
  - Malaise [Unknown]
  - Fatigue [Unknown]
